FAERS Safety Report 5206753-7 (Version None)
Quarter: 2006Q4

REPORT INFORMATION
  Report Type: 
  Country: None (occurrence: None)
  Receive Date: 20061030
  Receipt Date: 20060925
  Transmission Date: 20070319
  Serious: No
  Sender: FDA-Public Use
  Company Number: 257239

PATIENT
  Age: 83 Year
  Sex: Female

DRUGS (7)
  1. LEVEMIR [Suspect]
     Indication: INSULIN-REQUIRING TYPE II DIABETES MELLITUS
     Dosage: 5 LU, QD, SUBCUTANEOUS
     Route: 058
     Dates: start: 20060701
  2. NOVOFLINE 31 (NEEDLE) N/A [Concomitant]
  3. SYNTHROID [Concomitant]
  4. ASPIRIN [Concomitant]
  5. FUROSEMIDE [Concomitant]
  6. PLAVIX [Concomitant]
  7. FORTELYSIN (VITAMINS NOS, LYSINE HYDROCHLORIDE, GLUTAMIC ACID, FOLIC A [Concomitant]

REACTIONS (1)
  - BLOOD GLUCOSE DECREASED [None]
